FAERS Safety Report 9460015 (Version 1)
Quarter: 2013Q3

REPORT INFORMATION
  Report Type: Spontaneous
  Country: VN (occurrence: VN)
  Receive Date: 20130815
  Receipt Date: 20130815
  Transmission Date: 20140515
  Serious: Yes (Life-Threatening)
  Sender: FDA-Public Use
  Company Number: VN-ASTRAZENECA-2013SE62981

PATIENT
  Age: 9154 Day
  Sex: Female
  Weight: 60 kg

DRUGS (1)
  1. MARCAIN [Suspect]
     Indication: LOCAL ANAESTHESIA
     Route: 037
     Dates: start: 20130724, end: 20130724

REACTIONS (1)
  - Shock [Recovered/Resolved]
